FAERS Safety Report 7970938-7 (Version None)
Quarter: 2011Q4

REPORT INFORMATION
  Report Type: 
  Country: None (occurrence: None)
  Receive Date: 20111212
  Receipt Date: 20111130
  Transmission Date: 20120403
  Serious: Yes (Hospitalization)
  Sender: FDA-Public Use
  Company Number: JP-GENZYME-THYM-1002944

PATIENT
  Sex: Male
  Weight: 30 kg

DRUGS (66)
  1. THYMOGLOBULIN [Suspect]
     Indication: GRAFT VERSUS HOST DISEASE IN SKIN
     Dosage: UNK
     Route: 042
     Dates: start: 20110409, end: 20110420
  2. HYDROCORTISONE SODIUM SUCCINATE [Concomitant]
     Indication: PROPHYLAXIS
     Dosage: UNK
     Dates: start: 20101019, end: 20101110
  3. SODIUM BICARBONATE [Concomitant]
     Indication: PROPHYLAXIS
     Dosage: UNK
     Dates: start: 20101019, end: 20101025
  4. ETOPOSIDE [Concomitant]
     Indication: BONE MARROW CONDITIONING REGIMEN
     Dosage: UNK
     Dates: start: 20101022, end: 20101023
  5. HYDROXYZINE HYDROCHLORIDE [Concomitant]
     Indication: PREMEDICATION
     Dosage: UNK
     Dates: start: 20101025, end: 20101026
  6. HYDROXYZINE HYDROCHLORIDE [Concomitant]
     Dosage: UNK
     Dates: start: 20110409, end: 20110410
  7. MIXED AMINO ACID-CARBOHYDRATE-ELECTROLYTE-VITAMIN COMBINED DRUG [Concomitant]
     Dosage: UNK
     Dates: start: 20101116, end: 20110105
  8. METHOTREXATE [Concomitant]
     Dosage: UNK
     Dates: start: 20101217, end: 20101217
  9. METHOTREXATE [Concomitant]
     Dosage: UNK
     Dates: start: 20101231, end: 20101231
  10. CEFOZOPRAN HYDROCHLORIDE [Concomitant]
     Indication: INFECTION PROPHYLAXIS
     Dosage: UNK
     Dates: start: 20110415
  11. RED BLOOD CELLS [Concomitant]
     Dosage: UNK
     Dates: start: 20110303, end: 20110303
  12. PLATELETS [Concomitant]
     Dosage: UNK
     Dates: start: 20110409
  13. FAMOTIDINE [Concomitant]
     Indication: GASTRITIS PROPHYLAXIS
     Dosage: UNK
     Dates: start: 20110224, end: 20110317
  14. GRANISETRON [Concomitant]
     Indication: PROPHYLAXIS
     Dosage: UNK
     Dates: start: 20101019, end: 20101110
  15. HYDROCORTISONE SODIUM SUCCINATE [Concomitant]
     Indication: PREMEDICATION
     Dosage: UNK
     Dates: start: 20101212, end: 20101226
  16. TACROLIMUS [Concomitant]
     Indication: PROPHYLAXIS AGAINST GRAFT VERSUS HOST DISEASE
     Dosage: UNK
     Dates: start: 20101027, end: 20101115
  17. MIXED AMINO ACID-CARBOHYDRATE-ELECTROLYTE-VITAMIN COMBINED DRUG [Concomitant]
     Indication: NUTRITIONAL SUPPORT
     Dosage: UNK
     Dates: start: 20101029, end: 20101101
  18. RED BLOOD CELLS [Concomitant]
     Indication: BONE MARROW CONDITIONING REGIMEN
     Dosage: UNK
     Dates: start: 20101023, end: 20101023
  19. MYCOPHENOLATE MOFETIL [Concomitant]
     Indication: PROPHYLAXIS AGAINST GRAFT VERSUS HOST DISEASE
     Dosage: UNK
     Dates: start: 20101210
  20. HYDROXYZINE HYDROCHLORIDE [Concomitant]
     Dosage: UNK
     Dates: start: 20110419, end: 20110420
  21. METHYLPREDNISOLONE SODIUM SUCCINATE [Concomitant]
     Indication: PREMEDICATION
     Dosage: UNK
     Dates: start: 20101025, end: 20101026
  22. PREDNISOLONE SODIUM SUCCINATE INJ [Concomitant]
     Indication: PROPHYLAXIS AGAINST GRAFT VERSUS HOST DISEASE
     Dosage: UNK
     Dates: start: 20101027
  23. LORAZEPAM [Concomitant]
     Indication: ANXIETY DISORDER
     Dosage: UNK
     Dates: start: 20101018, end: 20101021
  24. FLUNITRAZEPAM [Concomitant]
     Indication: ANXIETY DISORDER
     Dosage: UNK
     Dates: start: 20101208
  25. ACETAZOLAMIDE [Concomitant]
     Indication: PROPHYLAXIS
     Dosage: UNK
     Dates: start: 20101019, end: 20101024
  26. PIPERACILLIN SODIUM [Concomitant]
     Indication: INFECTION PROPHYLAXIS
     Dosage: UNK
     Dates: start: 20101019, end: 20101101
  27. FUROSEMIDE [Concomitant]
     Indication: PROPHYLAXIS
     Dosage: UNK
     Dates: start: 20101020
  28. TACROLIMUS [Concomitant]
     Dosage: UNK
     Dates: start: 20101115
  29. METHOTREXATE [Concomitant]
     Dosage: UNK
     Dates: start: 20101102, end: 20101102
  30. METHOTREXATE [Concomitant]
     Dosage: UNK
     Dates: start: 20101211, end: 20101211
  31. FLUCONAZOLE [Concomitant]
     Indication: INFECTION PROPHYLAXIS
     Dosage: UNK
     Dates: start: 20101018, end: 20101020
  32. THYMOGLOBULIN [Suspect]
     Dosage: UNK
     Dates: start: 20110419, end: 20110420
  33. FAMOTIDINE [Concomitant]
     Indication: PROPHYLAXIS
     Dosage: UNK
     Dates: start: 20101019, end: 20110203
  34. MICAFUNGIN [Concomitant]
     Indication: INFECTION PROPHYLAXIS
     Dosage: UNK
     Dates: start: 20101019, end: 20110119
  35. DALTEPARIN SODIUM [Concomitant]
     Indication: PROPHYLAXIS
     Dosage: UNK
     Dates: start: 20101020, end: 20101221
  36. MIXED AMINO ACID-CARBOHYDRATE-ELECTROLYTE-VITAMIN COMBINED DRUG [Concomitant]
     Dosage: UNK
     Dates: start: 20101102, end: 20101115
  37. METHOTREXATE [Concomitant]
     Dosage: UNK
     Dates: start: 20101030, end: 20101030
  38. ETHYL ICOSAPENTATE [Concomitant]
     Indication: PROPHYLAXIS
     Dosage: UNK
     Dates: start: 20101018, end: 20110217
  39. VANCOMYCIN HCL [Concomitant]
     Indication: INFECTION PROPHYLAXIS
     Dosage: UNK
     Dates: start: 20101018, end: 20101112
  40. URSODIOL [Concomitant]
     Indication: PROPHYLAXIS
     Dosage: UNK
     Dates: start: 20101018, end: 20110217
  41. RED BLOOD CELLS [Concomitant]
     Dosage: UNK
     Dates: start: 20110419, end: 20110419
  42. CLOMIPRAMINE HYDROCHLORIDE [Concomitant]
     Indication: ANXIETY DISORDER
     Dosage: UNK
     Dates: start: 20100217
  43. TOTAL BODY IRRADIATION [Concomitant]
     Indication: BONE MARROW CONDITIONING REGIMEN
     Dosage: UNK
     Dates: start: 20101019, end: 20101021
  44. CYCLOPHOSPHAMIDE [Concomitant]
     Indication: BONE MARROW CONDITIONING REGIMEN
     Dosage: UNK
     Dates: start: 20101023, end: 20101024
  45. HYDROXYZINE HYDROCHLORIDE [Concomitant]
     Dosage: UNK
     Dates: start: 20110122, end: 20110414
  46. METHYLPREDNISOLONE SODIUM SUCCINATE [Concomitant]
     Dosage: UNK
     Dates: start: 20110419, end: 20110420
  47. METHOTREXATE [Concomitant]
     Dosage: UNK
     Dates: start: 20101125, end: 20101125
  48. CEFTAZIDIME [Concomitant]
     Indication: INFECTION PROPHYLAXIS
     Dosage: UNK
     Dates: start: 20101101, end: 20101105
  49. MEROPENEM [Concomitant]
     Indication: INFECTION PROPHYLAXIS
     Dosage: UNK
     Dates: start: 20110215, end: 20110302
  50. COTRIM [Concomitant]
     Indication: INFECTION PROPHYLAXIS
     Dosage: UNK
     Dates: start: 20101018
  51. RED BLOOD CELLS [Concomitant]
     Indication: HODGKIN'S DISEASE
     Dosage: UNK
     Dates: start: 20101029, end: 20101029
  52. PLATELETS [Concomitant]
     Indication: BONE MARROW CONDITIONING REGIMEN
     Dosage: UNK
     Dates: start: 20110228, end: 20110320
  53. ACYCLOVIR [Concomitant]
     Indication: INFECTION PROPHYLAXIS
     Dosage: UNK
     Dates: start: 20101021, end: 20101223
  54. LEVOMEPROMAZINE HYDROCHLORIDE [Concomitant]
     Indication: ANXIETY DISORDER
     Dosage: UNK
     Dates: start: 20101022, end: 20101023
  55. METHOTREXATE [Concomitant]
     Dosage: UNK
     Dates: start: 20101224, end: 20101224
  56. THYMOGLOBULIN [Suspect]
     Indication: BONE MARROW CONDITIONING REGIMEN
     Dosage: 38 MG, QD
     Route: 042
     Dates: start: 20101025, end: 20101026
  57. MESNA [Concomitant]
     Indication: PROPHYLAXIS
     Dosage: UNK
     Dates: start: 20101023, end: 20101024
  58. METHOTREXATE [Concomitant]
     Indication: PROPHYLAXIS AGAINST GRAFT VERSUS HOST DISEASE
     Dosage: UNK
     Dates: start: 20101028, end: 20101028
  59. LENOGRASTIM [Concomitant]
     Indication: WHITE BLOOD CELL COUNT DECREASED
     Dosage: UNK
     Dates: start: 20101029, end: 20101107
  60. RED BLOOD CELLS [Concomitant]
     Dosage: UNK
     Dates: start: 20101104, end: 20101104
  61. RED BLOOD CELLS [Concomitant]
     Dosage: UNK
     Dates: start: 20110226, end: 20110226
  62. RED BLOOD CELLS [Concomitant]
     Dosage: UNK
     Dates: start: 20110321, end: 20110321
  63. PLATELETS [Concomitant]
     Indication: HODGKIN'S DISEASE
     Dosage: UNK
     Dates: start: 20101026, end: 20101107
  64. RISPERIDONE [Concomitant]
     Indication: ANXIETY DISORDER
     Dosage: UNK
     Dates: start: 20101022
  65. NIFEDIPINE [Concomitant]
     Indication: PROPHYLAXIS
     Dosage: UNK
     Dates: start: 20110309
  66. PREDNISOLONE [Concomitant]
     Indication: PROPHYLAXIS AGAINST GRAFT VERSUS HOST DISEASE
     Dosage: UNK
     Dates: start: 20110311, end: 20110424

REACTIONS (17)
  - GRAFT VERSUS HOST DISEASE IN INTESTINE [None]
  - DIARRHOEA [None]
  - HYPERTENSION [None]
  - ABDOMINAL PAIN [None]
  - CYSTITIS HAEMORRHAGIC [None]
  - CYTOMEGALOVIRUS VIRAEMIA [None]
  - NEOPLASM PROGRESSION [None]
  - PLEURAL EFFUSION [None]
  - TREMOR [None]
  - GRAFT VERSUS HOST DISEASE IN SKIN [None]
  - STOMATITIS [None]
  - BRONCHOPULMONARY ASPERGILLOSIS [None]
  - EPSTEIN-BARR VIRAEMIA [None]
  - HEPATIC FUNCTION ABNORMAL [None]
  - ENGRAFTMENT SYNDROME [None]
  - HUMAN HERPESVIRUS 6 INFECTION [None]
  - PYREXIA [None]
